FAERS Safety Report 5910684-4 (Version None)
Quarter: 2008Q4

REPORT INFORMATION
  Report Type: 
  Country: None (occurrence: None)
  Receive Date: 20081007
  Receipt Date: 20080825
  Transmission Date: 20090506
  Serious: Yes (Hospitalization)
  Sender: FDA-Public Use
  Company Number: ES-ASTRAZENECA-2008AC02280

PATIENT
  Age: 33 Year
  Sex: Female

DRUGS (4)
  1. SEROQUEL [Suspect]
     Indication: BIPOLAR DISORDER
     Route: 048
     Dates: start: 20080501, end: 20080624
  2. LEVOTHROID [Concomitant]
     Route: 048
  3. RISPERDAL CONSTA [Concomitant]
     Dosage: 25 MG POWDER AND SOLVENT FOR INJECTABLE SOLUTION
  4. RIVOTRIL [Concomitant]

REACTIONS (3)
  - DRUG INEFFECTIVE [None]
  - LIVER INJURY [None]
  - MANIA [None]
